FAERS Safety Report 4681354-8 (Version None)
Quarter: 2005Q2

REPORT INFORMATION
  Report Type: 
  Country: None (occurrence: None)
  Receive Date: 20050601
  Receipt Date: 20050524
  Transmission Date: 20051028
  Serious: No
  Sender: FDA-Public Use
  Company Number: TPA2005A00549

PATIENT
  Age: 59 Year
  Sex: Female
  Weight: 126.5536 kg

DRUGS (28)
  1. ACTOS [Suspect]
     Indication: DIABETES MELLITUS NON-INSULIN-DEPENDENT
     Dosage: 15 MG, 1 IN 1 D, PER ORAL
     Route: 048
     Dates: start: 20000101
  2. ACTOS [Suspect]
     Dosage: 30 MG, 1 IN 1 D, PER ORAL
     Route: 048
  3. ACTOS [Suspect]
     Dosage: 45 MG, 1 IN 1 D, PER ORAL
     Route: 048
  4. ACTOS [Suspect]
     Dosage: 15 MG, 1 IN 1 D, PER ORAL
     Route: 048
     Dates: start: 20011201, end: 20020101
  5. ACTOS [Suspect]
     Dosage: 30 MG, 1 IN 1 D, PER ORAL
     Route: 048
     Dates: start: 20020101
  6. HUMALOG [Suspect]
     Indication: DIABETES MELLITUS
     Dosage: SLIDING SCALE, DAILY
     Dates: start: 19960101
  7. HUMULIN N [Suspect]
     Dosage: 70 U GAM + 30 U GPM, DAILY, SUBCUTANEOUS
     Route: 058
  8. ASPIRIN [Concomitant]
  9. CELEBREX [Concomitant]
  10. AMBIEN [Concomitant]
  11. LASIX [Concomitant]
  12. PREVACID [Concomitant]
  13. LIPITOR [Concomitant]
  14. VITAMIN E [Concomitant]
  15. TYLENOL WITH CODEINE (PANADEINE CO) [Concomitant]
  16. INSULIN GLARGINE (INSULIN GLARGINE) [Concomitant]
  17. ZAROXOLYN [Concomitant]
  18. OXYCONTIN [Concomitant]
  19. KLONOPIN [Concomitant]
  20. STARLIX [Concomitant]
  21. ALEXA (ALL OTHER THERAPEUTIC PRODUCTS) [Concomitant]
  22. PAXIL CR [Concomitant]
  23. WELCHOL [Concomitant]
  24. FENTANYL [Concomitant]
  25. ELAVIL [Concomitant]
  26. EFFEXOR XR [Concomitant]
  27. LANTUS [Concomitant]
  28. DIOVAN (CO-DIOVAN) [Concomitant]

REACTIONS (3)
  - DIABETES MELLITUS INADEQUATE CONTROL [None]
  - HYPOGLYCAEMIA [None]
  - INCORRECT DOSE ADMINISTERED [None]
